FAERS Safety Report 4407345-X (Version None)
Quarter: 2004Q3

REPORT INFORMATION
  Report Type: 
  Country: None (occurrence: None)
  Receive Date: 20040721
  Receipt Date: 20040630
  Transmission Date: 20050211
  Serious: Yes (Death, Hospitalization)
  Sender: FDA-Public Use
  Company Number: USA040771613

PATIENT
  Sex: Female

DRUGS (4)
  1. ZYPREXA [Suspect]
     Dosage: 15 MG DAY
     Dates: start: 20020808
  2. PAXIL [Concomitant]
  3. CLONOPIN (CLONAZEPAM) [Concomitant]
  4. HALOPERDIOL [Concomitant]

REACTIONS (3)
  - DRUG LEVEL INCREASED [None]
  - EXTRAPYRAMIDAL DISORDER [None]
  - MULTIPLE DRUG OVERDOSE [None]
